FAERS Safety Report 6110693-9 (Version None)
Quarter: 2009Q1

REPORT INFORMATION
  Report Type: 
  Country: None (occurrence: None)
  Receive Date: 20090309
  Receipt Date: 20090220
  Transmission Date: 20090719
  Serious: Yes (Other)
  Sender: FDA-Public Use
  Company Number: 09-0022

PATIENT
  Age: 24 Year
  Sex: Male
  Weight: 77.1115 kg

DRUGS (2)
  1. SMZ / TMP TABLETS, USP 80 MG / 160MG [Suspect]
     Indication: STAPHYLOCOCCAL INFECTION
     Dates: start: 20081218, end: 20081224
  2. ATENOLOL [Concomitant]

REACTIONS (7)
  - BODY TEMPERATURE INCREASED [None]
  - ERYTHEMA [None]
  - HEADACHE [None]
  - LIVER FUNCTION TEST ABNORMAL [None]
  - RASH [None]
  - TINNITUS [None]
  - URTICARIA [None]
